FAERS Safety Report 13779859 (Version 1)
Quarter: 2017Q3

REPORT INFORMATION
  Report Type: Report from Study
  Country: PA (occurrence: PA)
  Receive Date: 20170723
  Receipt Date: 20170723
  Transmission Date: 20171127
  Serious: Yes (Other)
  Sender: FDA-Public Use
  Company Number: PA-EMD SERONO-E2B_80068544

PATIENT
  Sex: Female

DRUGS (2)
  1. REBIF [Suspect]
     Active Substance: INTERFERON BETA-1A
     Indication: MULTIPLE SCLEROSIS
     Route: 058
     Dates: start: 20130114
  2. GABAPENTIN. [Concomitant]
     Active Substance: GABAPENTIN
     Indication: BACK PAIN

REACTIONS (4)
  - Brain oedema [Recovering/Resolving]
  - Eye swelling [Recovering/Resolving]
  - Optic neuritis [Recovering/Resolving]
  - Depression [Recovering/Resolving]
